FAERS Safety Report 11989469 (Version 1)
Quarter: 2016Q1

REPORT INFORMATION
  Report Type: Spontaneous
  Country: US (occurrence: US)
  Receive Date: 20160202
  Receipt Date: 20160202
  Transmission Date: 20160526
  Serious: Yes (Other)
  Sender: FDA-Public Use
  Company Number: US-HQ SPECIALTY-US-2016INT000035

PATIENT
  Age: 54 Year
  Sex: Female

DRUGS (2)
  1. CISPLATIN. [Suspect]
     Active Substance: CISPLATIN
     Indication: SQUAMOUS CELL CARCINOMA OF THE CERVIX
     Dosage: 50 MG/M2, DAY 1 EVERY THREE WEEKS
     Dates: start: 201310
  2. TOPOTECAN [Suspect]
     Active Substance: TOPOTECAN\TOPOTECAN HYDROCHLORIDE
     Indication: SQUAMOUS CELL CARCINOMA OF THE CERVIX
     Dosage: 0.75 MG/M2, DAILY ON DAYS ONE, TWO, AND THREE, EVERY 3 WEEKS
     Dates: start: 201310

REACTIONS (2)
  - Mental status changes [Recovered/Resolved]
  - Status epilepticus [Recovered/Resolved]

NARRATIVE: CASE EVENT DATE: 201402
